FAERS Safety Report 6290858-6 (Version None)
Quarter: 2009Q3

REPORT INFORMATION
  Report Type: 
  Country: None (occurrence: None)
  Receive Date: 20090730
  Receipt Date: 20090722
  Transmission Date: 20100115
  Serious: Yes (Hospitalization)
  Sender: FDA-Public Use
  Company Number: PT-JNJFOC-20090608995

PATIENT
  Sex: Male

DRUGS (3)
  1. INFLIXIMAB [Suspect]
     Indication: CYTOMEGALOVIRUS COLITIS
     Route: 042
  2. INFLIXIMAB [Suspect]
     Indication: COLITIS ULCERATIVE
     Route: 042
  3. INFLIXIMAB [Suspect]
     Indication: GASTROINTESTINAL INFLAMMATION
     Route: 042

REACTIONS (2)
  - DRUG INEFFECTIVE [None]
  - PNEUMOCYSTIS JIROVECI PNEUMONIA [None]
